FAERS Safety Report 9295737 (Version 1)
Quarter: 2013Q2

REPORT INFORMATION
  Report Type: Spontaneous
  Country: AU (occurrence: None)
  Receive Date: 20130514
  Receipt Date: 20130514
  Transmission Date: 20140414
  Serious: Yes (Disabling)
  Sender: FDA-Public Use
  Company Number: 2013-000928

PATIENT
  Age: 65 Year
  Sex: Female
  Weight: 78 kg

DRUGS (3)
  1. ACTONEL [Suspect]
     Route: 048
     Dates: start: 20130301
  2. GLUCOSAMINE [Concomitant]
  3. CHONDROTIN [Concomitant]

REACTIONS (6)
  - Chills [None]
  - Feeling cold [None]
  - Decreased appetite [None]
  - Dysstasia [None]
  - Feeling abnormal [None]
  - Hypersomnia [None]
